FAERS Safety Report 5291092-9 (Version None)
Quarter: 2007Q2

REPORT INFORMATION
  Report Type: 
  Country: None (occurrence: None)
  Receive Date: 20070402
  Receipt Date: 20070320
  Transmission Date: 20071010
  Serious: Yes (Other)
  Sender: FDA-Public Use
  Company Number: CHNY2007BR01400

PATIENT
  Age: 21 Year
  Sex: Female
  Weight: 95 kg

DRUGS (1)
  1. CIBALENAA (NCH)(CAFFEINE CITRATE, ACETYLSALICYLIC ACID, ACETAMINOPHEN [Suspect]
     Indication: HEADACHE
     Dosage: TID, ORAL
     Route: 048

REACTIONS (4)
  - ABDOMINAL PAIN [None]
  - DRUG ABUSER [None]
  - DRUG EXPOSURE DURING PREGNANCY [None]
  - DYSPEPSIA [None]
